FAERS Safety Report 4392629-4 (Version None)
Quarter: 2004Q3

REPORT INFORMATION
  Report Type: 
  Country: None (occurrence: None)
  Receive Date: 20040701
  Receipt Date: 20040621
  Transmission Date: 20050211
  Serious: Yes (Hospitalization)
  Sender: FDA-Public Use
  Company Number: J200402185

PATIENT
  Age: 50 Year
  Sex: Male

DRUGS (4)
  1. MYSELEE ZOLPIDEM TABLET 10 MG [Suspect]
     Indication: INSOMNIA
     Dosage: 10 MG PO
     Route: 048
     Dates: start: 20040201, end: 20040406
  2. LIPITOR [Suspect]
     Indication: HYPERCHOLESTEROLAEMIA
     Dosage: 15 MG, PO
     Route: 048
     Dates: start: 20030701, end: 20040406
  3. ROHYPNOL (FLUNITRAZEPAM) [Suspect]
     Indication: INSOMNIA
     Dosage: PO
     Route: 048
     Dates: start: 20030701, end: 20040406
  4. GASMOTIN (MOSAPRIDE CITRATE) [Concomitant]

REACTIONS (9)
  - ALANINE AMINOTRANSFERASE INCREASED [None]
  - ASPARTATE AMINOTRANSFERASE INCREASED [None]
  - DEPRESSED LEVEL OF CONSCIOUSNESS [None]
  - DIALYSIS [None]
  - HEPATIC FUNCTION ABNORMAL [None]
  - HYPOGLYCAEMIA [None]
  - MEMORY IMPAIRMENT [None]
  - OVERDOSE [None]
  - RENAL FAILURE ACUTE [None]
